FAERS Safety Report 14010613 (Version 2)
Quarter: 2017Q4

REPORT INFORMATION
  Report Type: Report from Study
  Country: None (occurrence: US)
  Receive Date: 20170926
  Receipt Date: 20171002
  Transmission Date: 20180321
  Serious: Yes (Hospitalization, Other)
  Sender: FDA-Public Use
  Company Number: US-ABBVIE-17K-163-2027187-00

PATIENT
  Sex: Female
  Weight: 101.7 kg

DRUGS (8)
  1. PREDNISONE. [Concomitant]
     Active Substance: PREDNISONE
     Indication: PRODUCT USED FOR UNKNOWN INDICATION
  2. DEPO-PROVERA [Concomitant]
     Active Substance: MEDROXYPROGESTERONE ACETATE
     Indication: CONTRACEPTION
  3. HUMIRA [Suspect]
     Active Substance: ADALIMUMAB
     Indication: CROHN^S DISEASE
     Route: 058
     Dates: start: 20160902, end: 201612
  4. TYLENOL [Concomitant]
     Active Substance: ACETAMINOPHEN
     Indication: PRODUCT USED FOR UNKNOWN INDICATION
  5. COLESTIPOL [Concomitant]
     Active Substance: COLESTIPOL
     Indication: DIARRHOEA
  6. B12 GUMMY VITAMINS [Concomitant]
     Indication: VITAMIN SUPPLEMENTATION
  7. HYDROCODONE [Concomitant]
     Active Substance: HYDROCODONE
     Indication: PAIN
  8. HUMIRA [Suspect]
     Active Substance: ADALIMUMAB
     Route: 058
     Dates: start: 201708

REACTIONS (10)
  - Small intestinal obstruction [Recovered/Resolved]
  - Lipoma [Recovered/Resolved]
  - Clostridium difficile colitis [Recovered/Resolved]
  - Anxiety [Not Recovered/Not Resolved]
  - Vaginal abscess [Recovered/Resolved]
  - Clostridium difficile colitis [Recovered/Resolved]
  - Abscess [Recovered/Resolved]
  - Renal neoplasm [Recovered/Resolved]
  - Post procedural sepsis [Unknown]
  - Gastrointestinal inflammation [Not Recovered/Not Resolved]

NARRATIVE: CASE EVENT DATE: 2016
